FAERS Safety Report 4483120-5 (Version None)
Quarter: 2004Q3

REPORT INFORMATION
  Report Type: 
  Country: None (occurrence: None)
  Receive Date: 20040921
  Receipt Date: 20040609
  Transmission Date: 20050211
  Serious: Yes (Hospitalization)
  Sender: FDA-Public Use
  Company Number: 163-20785-04060305

PATIENT
  Age: 61 Year
  Sex: Male
  Weight: 133.3 kg

DRUGS (12)
  1. THALOMID [Suspect]
     Indication: CHRONIC LYMPHOCYTIC LEUKAEMIA
     Dosage: 100MG, AT BEDTIME, ORAL
     Route: 048
     Dates: start: 20040325, end: 20040624
  2. ACTOS (PIOGLITAZONE) (UNKNOWN) [Concomitant]
  3. AMARYL (GLIMEPIRIDE) (UNKNOWN) [Concomitant]
  4. AMBIEN (ZOLPIDEM) (UNKNOWN) [Concomitant]
  5. BACTRIM [Concomitant]
  6. KEFLEX (CEFALEXIN MONOHYDRATE) (UNKNOWN) [Concomitant]
  7. LIPITOR [Concomitant]
  8. METFORMIN (METFORMIN) (UNKNOWN) [Concomitant]
  9. PROCRIT [Concomitant]
  10. PROTONIX [Concomitant]
  11. VALTREX (VALACICLOVIR HYDROCHLORIDE) (UNKNOWN) [Concomitant]
  12. AZITHROMYCIN [Concomitant]

REACTIONS (1)
  - HAEMOGLOBIN DECREASED [None]
